FAERS Safety Report 17316714 (Version 1)
Quarter: 2020Q1

REPORT INFORMATION
  Report Type: Spontaneous
  Country: DE (occurrence: DE)
  Receive Date: 20200124
  Receipt Date: 20200124
  Transmission Date: 20200409
  Serious: Yes (Death, Other)
  Sender: FDA-Public Use
  Company Number: NVSC2020DE017137

PATIENT
  Age: 18 Year
  Sex: Female

DRUGS (8)
  1. MYCOPHENOLATE MOFETIL. [Suspect]
     Active Substance: MYCOPHENOLATE MOFETIL
     Indication: IMMUNOSUPPRESSANT DRUG THERAPY
  2. THIOTEPA. [Concomitant]
     Active Substance: THIOTEPA
     Indication: STEM CELL TRANSPLANT
     Dosage: (2 X 5) MG/KG
     Route: 065
  3. CYCLOSPORINE. [Suspect]
     Active Substance: CYCLOSPORINE
     Indication: STEM CELL TRANSPLANT
  4. MYCOPHENOLATE MOFETIL. [Suspect]
     Active Substance: MYCOPHENOLATE MOFETIL
     Indication: STEM CELL TRANSPLANT
     Dosage: UNK
     Route: 065
  5. FLUDARABINE [Concomitant]
     Active Substance: FLUDARABINE PHOSPHATE
     Indication: STEM CELL TRANSPLANT
     Dosage: (4 X 40 MG/M2)
     Route: 065
  6. TREOSULFAN [Concomitant]
     Active Substance: TREOSULFAN
     Indication: STEM CELL TRANSPLANT
     Dosage: (3 ? 14 MG/M2)
     Route: 065
  7. CIDOFOVIR. [Concomitant]
     Active Substance: CIDOFOVIR
     Indication: ANTIVIRAL TREATMENT
     Dosage: UNK
     Route: 065
  8. CYCLOSPORINE. [Suspect]
     Active Substance: CYCLOSPORINE
     Indication: IMMUNOSUPPRESSANT DRUG THERAPY
     Dosage: UNK
     Route: 065

REACTIONS (6)
  - Cytomegalovirus infection [Unknown]
  - Graft versus host disease in skin [Fatal]
  - Graft versus host disease in gastrointestinal tract [Fatal]
  - Human herpesvirus 6 infection [Unknown]
  - Abnormal behaviour [Unknown]
  - Product use in unapproved indication [Unknown]
